FAERS Safety Report 4281864-1 (Version None)
Quarter: 2004Q1

REPORT INFORMATION
  Report Type: 
  Country: None (occurrence: None)
  Receive Date: 20040108
  Receipt Date: 20021219
  Transmission Date: 20041129
  Serious: Yes (Death, Hospitalization, Other)
  Sender: FDA-Public Use
  Company Number: HQ5031304NOV2002

PATIENT
  Age: 56 Year
  Sex: Female
  Weight: 74.91 kg

DRUGS (5)
  1. PREMPRO [Suspect]
     Indication: MENOPAUSAL SYMPTOMS
     Dosage: 1 TABLET DAILY; 0.625/2.5MG, ORAL
     Route: 048
     Dates: start: 19991201, end: 20021030
  2. ATENOLOL [Concomitant]
  3. LITHIUM CARBONATE [Concomitant]
  4. AMITRIPTYLINE HCL [Concomitant]
  5. LIPITOR [Concomitant]

REACTIONS (1)
  - PULMONARY EMBOLISM [None]
